FAERS Safety Report 18241906 (Version 1)
Quarter: 2020Q3

REPORT INFORMATION
  Report Type: Spontaneous
  Country: US (occurrence: US)
  Receive Date: 20200904
  Receipt Date: 20200904
  Transmission Date: 20201103
  Serious: No
  Sender: FDA-Public Use
  Company Number: None

PATIENT
  Age: 78 Year
  Sex: Female

DRUGS (10)
  1. REPATHA [Suspect]
     Active Substance: EVOLOCUMAB
     Indication: HYPERLIPIDAEMIA
     Dosage: ?     QUANTITY:2;?140MG/ML 2  EVERY 2 WEES UNDER THE SKIN?
     Route: 058
     Dates: start: 20200320
  2. LEVOTHYROXINE. [Concomitant]
     Active Substance: LEVOTHYROXINE
  3. CALCIUM AND VIT D [Concomitant]
     Active Substance: CALCIUM\VITAMIN D
  4. ALLEGRA [Concomitant]
     Active Substance: FEXOFENADINE HYDROCHLORIDE
  5. RESTASIS [Concomitant]
     Active Substance: CYCLOSPORINE
  6. GABAPENTIN. [Concomitant]
     Active Substance: GABAPENTIN
  7. IMIPRAMINE [Concomitant]
     Active Substance: IMIPRAMINE
  8. ICAPS [Concomitant]
     Active Substance: MINERALS\VITAMINS
  9. CLONAZEPAM. [Concomitant]
     Active Substance: CLONAZEPAM
  10. FISH OIL [Concomitant]
     Active Substance: FISH OIL

REACTIONS (2)
  - Skin irritation [None]
  - Neuropathy peripheral [None]

NARRATIVE: CASE EVENT DATE: 20200320
